FAERS Safety Report 5370351-5 (Version None)
Quarter: 2007Q2

REPORT INFORMATION
  Report Type: 
  Country: None (occurrence: None)
  Receive Date: 20070626
  Receipt Date: 20061128
  Transmission Date: 20071010
  Serious: No
  Sender: FDA-Public Use
  Company Number: US-AMGEN-US201568

PATIENT
  Age: 61 Year
  Sex: Male

DRUGS (8)
  1. ARANESP [Suspect]
     Indication: DIALYSIS
     Route: 065
     Dates: start: 20060501
  2. PHOSLO [Concomitant]
     Route: 065
  3. FOLVITE [Concomitant]
     Route: 065
  4. RENAGEL [Concomitant]
     Route: 065
  5. CEPHULAC [Concomitant]
     Route: 065
  6. DIGOXIN [Concomitant]
     Route: 065
  7. CORDARONE [Concomitant]
     Route: 065
  8. COMPAZINE [Concomitant]
     Route: 065

REACTIONS (1)
  - HAEMOGLOBIN DECREASED [None]
